FAERS Safety Report 9865301 (Version 1)
Quarter: 2014Q1

REPORT INFORMATION
  Report Type: Spontaneous
  Country: US (occurrence: US)
  Receive Date: 20140203
  Receipt Date: 20140203
  Transmission Date: 20141002
  Serious: No
  Sender: FDA-Public Use
  Company Number: US-ALLERGAN-1301389US

PATIENT
  Age: 63 Year
  Sex: Female

DRUGS (1)
  1. RESTASIS [Suspect]
     Indication: DRY EYE
     Dosage: UNK UNK, BID
     Route: 047
     Dates: start: 2011

REACTIONS (6)
  - Eye swelling [Recovered/Resolved]
  - Eye pain [Recovering/Resolving]
  - Eye pain [Recovered/Resolved]
  - Instillation site pain [Recovered/Resolved]
  - Ocular hyperaemia [Not Recovered/Not Resolved]
  - Erythema of eyelid [Not Recovered/Not Resolved]
